FAERS Safety Report 8446841-5 (Version None)
Quarter: 2012Q2

REPORT INFORMATION
  Report Type: 
  Country: None (occurrence: None)
  Receive Date: 20120612
  Receipt Date: 20120612
  Transmission Date: 20120825
  Serious: Yes (Life-Threatening)
  Sender: FDA-Public Use
  Company Number: None

PATIENT
  Age: 55 Year
  Sex: Female
  Weight: 76.4 kg

DRUGS (1)
  1. TAXOTERE [Suspect]
     Indication: OVARIAN EPITHELIAL CANCER
     Dosage: 55 MG, 1 TIME, IV DRIP
     Route: 041
     Dates: start: 20120606, end: 20120606

REACTIONS (1)
  - ANAPHYLACTIC REACTION [None]
